FAERS Safety Report 7362477-1 (Version None)
Quarter: 2011Q1

REPORT INFORMATION
  Report Type: 
  Country: None (occurrence: None)
  Receive Date: 20110318
  Receipt Date: 20110311
  Transmission Date: 20110831
  Serious: Yes (Other)
  Sender: FDA-Public Use
  Company Number: US-RB-023791-11

PATIENT
  Age: 28 Year
  Sex: Female
  Weight: 58 kg

DRUGS (1)
  1. SUBOXONE [Suspect]
     Indication: DRUG DEPENDENCE
     Dosage: UNIT DOSE IS 8 MG, EXACT DOSING  INFORMATION UNKNOWN, TAKES VARIOUS DOSES WEANING OFF
     Route: 060
     Dates: start: 20090101

REACTIONS (4)
  - PALPITATIONS [None]
  - INTENTIONAL DRUG MISUSE [None]
  - LOSS OF CONSCIOUSNESS [None]
  - HYPERTENSION [None]
